FAERS Safety Report 18602205 (Version 3)
Quarter: 2021Q1

REPORT INFORMATION
  Report Type: Spontaneous
  Country: RU (occurrence: RU)
  Receive Date: 20201210
  Receipt Date: 20210122
  Transmission Date: 20210419
  Serious: Yes (Hospitalization)
  Sender: FDA-Public Use
  Company Number: RU-BAUSCH-BL-2020-035642

PATIENT
  Sex: Male
  Weight: 87 kg

DRUGS (14)
  1. HYDROCORTISONE. [Suspect]
     Active Substance: HYDROCORTISONE
     Indication: ADRENOGENITAL SYNDROME
     Dosage: 20 MG IN THE MORNING AND 10 MG IN THE AFTERNOON AND AT BEDTIME
     Route: 065
     Dates: start: 201802, end: 201802
  2. HYDROCORTISONE. [Suspect]
     Active Substance: HYDROCORTISONE
     Dosage: OCCASIONALLY IN THE EVENING 2?3 TIMES A WEEK
     Route: 065
     Dates: start: 201802
  3. FLUDROCORTISONE [Suspect]
     Active Substance: FLUDROCORTISONE
     Dosage: 0.05 MG IN THE MORNING ON AN EMPTY STOMACH
     Route: 065
     Dates: start: 201802
  4. FLUDROCORTISONE [Suspect]
     Active Substance: FLUDROCORTISONE
     Dosage: 0.05 MG IN THE MORNING ON AN EMPTY STOMACH AND 0.025 (1/4 TABLET) AT 16:00
     Route: 065
  5. DEXAMETHASONE. [Concomitant]
     Active Substance: DEXAMETHASONE
     Indication: ADRENOGENITAL SYNDROME
     Dosage: 1 MG IN THE MORNING AND EVENING
  6. PREDNISOLONE. [Suspect]
     Active Substance: PREDNISOLONE
     Indication: ADRENOGENITAL SYNDROME
     Dosage: 7.5 MG IN THE MORNING
     Route: 065
     Dates: start: 2018, end: 201802
  7. PREDNISOLONE. [Suspect]
     Active Substance: PREDNISOLONE
     Dosage: IN THE MORNING AFTER BREAKFAST AND IN THE EVENING (21:00)),
     Route: 065
     Dates: start: 2018, end: 2018
  8. PREDNISOLONE. [Suspect]
     Active Substance: PREDNISOLONE
     Dosage: IN THE MORNING AND AFTERNOON AROUND 16:00,
     Route: 065
     Dates: start: 201802, end: 2018
  9. DEXAMETHASONE. [Concomitant]
     Active Substance: DEXAMETHASONE
     Dosage: IN THE AFTERNOON
  10. PREDNISOLONE. [Suspect]
     Active Substance: PREDNISOLONE
     Dosage: IN THE MORNING
     Route: 065
     Dates: start: 2018, end: 2018
  11. FLUDROCORTISONE [Suspect]
     Active Substance: FLUDROCORTISONE
     Route: 065
  12. PREDNISOLONE. [Suspect]
     Active Substance: PREDNISOLONE
     Dosage: ONE TABLET IN THE MORNING AND EVENING
     Route: 065
     Dates: start: 201802, end: 201802
  13. FLUDROCORTISONE [Suspect]
     Active Substance: FLUDROCORTISONE
     Indication: ADRENOGENITAL SYNDROME
     Dosage: MORNING
     Route: 065
     Dates: start: 201802, end: 201802
  14. FLUDROCORTISONE [Suspect]
     Active Substance: FLUDROCORTISONE
     Route: 065

REACTIONS (3)
  - Hyperadrenocorticism [Unknown]
  - Overdose [Unknown]
  - Therapy partial responder [Unknown]

NARRATIVE: CASE EVENT DATE: 2018
